FAERS Safety Report 4633391-7 (Version None)
Quarter: 2005Q2

REPORT INFORMATION
  Report Type: 
  Country: None (occurrence: None)
  Receive Date: 20050408
  Receipt Date: 20050329
  Transmission Date: 20051028
  Serious: Yes (Death)
  Sender: FDA-Public Use
  Company Number: HQWYE618501APR05

PATIENT
  Age: 49 Year
  Sex: Male

DRUGS (1)
  1. RAPAMUNE [Suspect]
     Dates: start: 20030901

REACTIONS (1)
  - MYOCARDIAL INFARCTION [None]
